FAERS Safety Report 5587139-2 (Version None)
Quarter: 2008Q1

REPORT INFORMATION
  Report Type: 
  Country: None (occurrence: None)
  Receive Date: 20080110
  Receipt Date: 20071228
  Transmission Date: 20080703
  Serious: Yes (Other)
  Sender: FDA-Public Use
  Company Number: JP-ASTRAZENECA-2008SE00017

PATIENT
  Age: 27152 Day
  Sex: Female
  Weight: 54 kg

DRUGS (4)
  1. BLOPRESS [Suspect]
     Indication: HYPERTENSION
     Route: 048
     Dates: start: 20050322, end: 20060424
  2. AMLODIN [Concomitant]
     Indication: HYPERTENSION
     Route: 048
     Dates: start: 20041119, end: 20050620
  3. AMLODIN [Concomitant]
     Route: 048
     Dates: start: 20050621, end: 20060424
  4. AMLODIN [Concomitant]
     Route: 048
     Dates: start: 20060425

REACTIONS (1)
  - INTERSTITIAL LUNG DISEASE [None]
